FAERS Safety Report 7331952-8 (Version None)
Quarter: 2011Q1

REPORT INFORMATION
  Report Type: 
  Country: None (occurrence: None)
  Receive Date: 20110304
  Receipt Date: 20110223
  Transmission Date: 20110831
  Serious: Yes (Hospitalization)
  Sender: FDA-Public Use
  Company Number: US-ELI_LILLY_AND_COMPANY-US201103000353

PATIENT
  Age: 54 Year
  Sex: Female

DRUGS (4)
  1. ATORVASTATIN CALCIUM [Concomitant]
     Indication: HYPERCHOLESTEROLAEMIA
     Dosage: 80 MG, DAILY (1/D)
     Route: 048
     Dates: start: 20020101
  2. VALSARTAN [Concomitant]
     Indication: HYPERTENSION
     Dosage: 160 MG, DAILY (1/D)
     Route: 048
     Dates: start: 20100701
  3. PRASUGREL HYDROCHLORIDE [Suspect]
     Indication: ACUTE CORONARY SYNDROME
     Dosage: 10 MG, UNK
     Dates: start: 20100810
  4. ASPIRIN [Concomitant]
     Dosage: 81 MG, UNK
     Dates: start: 20100820

REACTIONS (1)
  - SYNCOPE [None]
